FAERS Safety Report 11615672 (Version 1)
Quarter: 2015Q4

REPORT INFORMATION
  Report Type: Report from Study
  Country: AU (occurrence: AU)
  Receive Date: 20151009
  Receipt Date: 20151009
  Transmission Date: 20160304
  Serious: Yes (Death)
  Sender: FDA-Public Use
  Company Number: AU-ASTRAZENECA-2015SE95790

PATIENT
  Age: 15 Year
  Sex: Male

DRUGS (3)
  1. MORPHINE [Interacting]
     Active Substance: MORPHINE
     Route: 065
  2. QUETIAPINE [Suspect]
     Active Substance: QUETIAPINE
     Route: 048
  3. OXYCODONE [Interacting]
     Active Substance: OXYCODONE
     Route: 065

REACTIONS (2)
  - Drug interaction [Fatal]
  - Toxicity to various agents [Fatal]
